FAERS Safety Report 25050434 (Version 1)
Quarter: 2025Q1

REPORT INFORMATION
  Report Type: Spontaneous
  Country: US (occurrence: US)
  Receive Date: 20250307
  Receipt Date: 20250307
  Transmission Date: 20250409
  Serious: Yes (Other)
  Sender: MYLAN
  Company Number: US-MYLANLABS-2025M1018419

PATIENT
  Age: 2 Year
  Sex: Male

DRUGS (9)
  1. TACROLIMUS [Suspect]
     Active Substance: TACROLIMUS
     Indication: Prophylaxis against graft versus host disease
  2. GANCICLOVIR [Suspect]
     Active Substance: GANCICLOVIR
     Indication: Cytomegalovirus infection
     Dosage: 5 MILLIGRAM/KILOGRAM, BID
  3. FOSCARNET [Suspect]
     Active Substance: FOSCARNET
     Indication: Cytomegalovirus infection
     Dosage: 60 MILLIGRAM/KILOGRAM, Q8H
  4. FOSCARNET [Suspect]
     Active Substance: FOSCARNET
     Dosage: 90 MILLIGRAM/KILOGRAM, QD
  5. FOSCARNET [Suspect]
     Active Substance: FOSCARNET
  6. BASILIXIMAB [Suspect]
     Active Substance: BASILIXIMAB
     Indication: Prophylaxis against graft versus host disease
  7. INFLIXIMAB [Suspect]
     Active Substance: INFLIXIMAB
     Indication: Prophylaxis against graft versus host disease
  8. VEDOLIZUMAB [Suspect]
     Active Substance: VEDOLIZUMAB
     Indication: Prophylaxis against graft versus host disease
  9. VALGANCICLOVIR [Suspect]
     Active Substance: VALGANCICLOVIR
     Indication: Antiviral prophylaxis

REACTIONS (1)
  - Drug ineffective [Unknown]
